FAERS Safety Report 9665425 (Version 1)
Quarter: 2013Q4

REPORT INFORMATION
  Report Type: Spontaneous
  Country: US (occurrence: None)
  Receive Date: 20131031
  Receipt Date: 20131031
  Transmission Date: 20140711
  Serious: Yes (Life-Threatening, Disabling, Other)
  Sender: FDA-Public Use
  Company Number: None

PATIENT
  Age: 87 Year
  Sex: Female
  Weight: 63.05 kg

DRUGS (12)
  1. MYRBETRIQ [Suspect]
     Indication: BLADDER DISORDER
     Dosage: 50MG ?1 PILL?1X DAY?BY MOUTH (WHOLE)
     Route: 048
     Dates: start: 20130403, end: 20130428
  2. LOPRESSOR [Concomitant]
  3. ZOCOR [Concomitant]
  4. VESICARE [Concomitant]
  5. ARMOUR THYROID [Concomitant]
  6. AVAPRO [Concomitant]
  7. NITROFURANTON [Concomitant]
  8. C-DHEALOPREGSOINE [Concomitant]
  9. ESTRADIOL PATCH [Concomitant]
  10. ASPIRIN [Concomitant]
  11. VIT D [Concomitant]
  12. VITAMIN E [Concomitant]

REACTIONS (4)
  - Swollen tongue [None]
  - Urticaria [None]
  - Eye irritation [None]
  - Vision blurred [None]
